FAERS Safety Report 15852222 (Version 1)
Quarter: 2019Q1

REPORT INFORMATION
  Report Type: Spontaneous
  Country: US (occurrence: US)
  Receive Date: 20190122
  Receipt Date: 20190122
  Transmission Date: 20190417
  Serious: Yes (Death, Other)
  Sender: FDA-Public Use
  Company Number: US-ROCHE-2247968

PATIENT
  Age: 73 Year
  Sex: Male

DRUGS (8)
  1. SODIUM BICARBONATE. [Concomitant]
     Active Substance: SODIUM BICARBONATE
     Dosage: ONGOING: UNKNOWN
     Route: 048
     Dates: start: 20190104
  2. ELIQUIS [Concomitant]
     Active Substance: APIXABAN
     Dosage: ONGOING: UNKNOWN
     Route: 048
  3. SIMVASTATIN. [Concomitant]
     Active Substance: SIMVASTATIN
     Dosage: ONGOING: UNKNOWN
     Route: 048
  4. METOPROLOL. [Concomitant]
     Active Substance: METOPROLOL
     Dosage: ONGOING: UNKNOWN
     Route: 048
  5. RITUXAN [Suspect]
     Active Substance: RITUXIMAB
     Indication: PRODUCT USED FOR UNKNOWN INDICATION
     Dosage: ONGOING: UNKNOWN
     Route: 065
     Dates: start: 20190114
  6. CALCIUM ACETATE. [Concomitant]
     Active Substance: CALCIUM ACETATE
     Dosage: ONGOING: UNKNOWN
     Route: 048
  7. FLEXERIL [Concomitant]
     Active Substance: CYCLOBENZAPRINE HYDROCHLORIDE
     Dosage: ONGOING: UNKNOWN
     Route: 065
  8. BUMEX [Concomitant]
     Active Substance: BUMETANIDE
     Dosage: ONGOING: UNKNOWN
     Route: 048
     Dates: start: 20190104

REACTIONS (5)
  - Unevaluable event [Not Recovered/Not Resolved]
  - Intentional product use issue [Unknown]
  - Off label use [Unknown]
  - Haematemesis [Unknown]
  - Death [Fatal]

NARRATIVE: CASE EVENT DATE: 20190116
